FAERS Safety Report 7304859-X (Version None)
Quarter: 2011Q1

REPORT INFORMATION
  Report Type: 
  Country: None (occurrence: None)
  Receive Date: 20110222
  Receipt Date: 20110210
  Transmission Date: 20110831
  Serious: Yes (Other)
  Sender: FDA-Public Use
  Company Number: DE-US-EMD SERONO, INC.-7038670

PATIENT
  Sex: Female
  Weight: 60 kg

DRUGS (4)
  1. REBIF [Suspect]
     Indication: MULTIPLE SCLEROSIS
     Route: 058
     Dates: start: 20101213
  2. RAMIPRIL [Concomitant]
     Indication: HYPERTENSION
  3. METOPROLOL [Concomitant]
     Indication: HYPERTENSION
  4. REBIF [Suspect]
     Route: 058
     Dates: start: 20110126

REACTIONS (9)
  - NAUSEA [None]
  - INFLUENZA LIKE ILLNESS [None]
  - LIMB DISCOMFORT [None]
  - FATIGUE [None]
  - HEADACHE [None]
  - MUSCULAR WEAKNESS [None]
  - HYPERTENSION [None]
  - TACHYCARDIA [None]
  - SENSATION OF HEAVINESS [None]
